FAERS Safety Report 6443388-2 (Version None)
Quarter: 2009Q4

REPORT INFORMATION
  Report Type: 
  Country: None (occurrence: None)
  Receive Date: 20091117
  Receipt Date: 20091102
  Transmission Date: 20100525
  Serious: Yes (Hospitalization, Other)
  Sender: FDA-Public Use
  Company Number: US-SANOFI-AVENTIS-F03200900122

PATIENT
  Age: 64 Year
  Sex: Male

DRUGS (11)
  1. OXALIPLATIN [Suspect]
     Indication: PANCREATIC CARCINOMA
     Route: 042
     Dates: start: 20090914, end: 20090914
  2. INVESTIGATIONAL DRUG [Suspect]
     Indication: PANCREATIC CARCINOMA
     Dosage: UNIT DOSE: 50 MG
     Route: 048
     Dates: start: 20090914, end: 20090914
  3. CAPECITABINE [Suspect]
     Indication: PANCREATIC CARCINOMA
     Route: 048
     Dates: start: 20090914, end: 20090914
  4. BEVACIZUMAB [Suspect]
     Indication: PANCREATIC CARCINOMA
     Route: 042
     Dates: start: 20090914, end: 20090914
  5. ZOFRAN [Concomitant]
  6. COMPAZINE [Concomitant]
  7. DOCUSATE [Concomitant]
  8. FLOMAX [Concomitant]
  9. RITALIN [Concomitant]
  10. HYDROCODONE [Concomitant]
  11. ATIVAN [Concomitant]

REACTIONS (3)
  - ANAEMIA [None]
  - MALIGNANT NEOPLASM PROGRESSION [None]
  - PLEURAL EFFUSION [None]
